FAERS Safety Report 9772599 (Version 1)
Quarter: 2013Q4

REPORT INFORMATION
  Report Type: Spontaneous
  Country: US (occurrence: US)
  Receive Date: 20131219
  Receipt Date: 20131219
  Transmission Date: 20140711
  Serious: No
  Sender: FDA-Public Use
  Company Number: US-PFIZER INC-2013363856

PATIENT
  Age: 47 Year
  Sex: Female
  Weight: 58.96 kg

DRUGS (5)
  1. LYRICA [Suspect]
     Indication: FIBROMYALGIA
     Dosage: 75 MG, 2X/DAY
     Dates: end: 201312
  2. LYRICA [Suspect]
     Indication: ARTHRITIS
  3. NEXIUM [Concomitant]
     Indication: ULCER
     Dosage: 40 MG, DAILY
  4. HUMALOG [Concomitant]
     Indication: DIABETES MELLITUS
     Dosage: UNK
  5. LANTUS [Concomitant]
     Indication: DIABETES MELLITUS
     Dosage: 50 IU, 2X/DAY

REACTIONS (2)
  - Off label use [Unknown]
  - Pain [Unknown]
